FAERS Safety Report 6786610-5 (Version None)
Quarter: 2010Q2

REPORT INFORMATION
  Report Type: 
  Country: None (occurrence: None)
  Receive Date: 20100623
  Receipt Date: 20100617
  Transmission Date: 20101027
  Serious: Yes (Congenital Anomaly)
  Sender: FDA-Public Use
  Company Number: FR-GILEAD-2010-0029941

PATIENT
  Sex: Female
  Weight: 8.8 kg

DRUGS (6)
  1. TRUVADA [Suspect]
     Indication: HIV INFECTION
     Route: 064
     Dates: end: 20090904
  2. FOSAMPRENAVIR [Concomitant]
     Route: 064
     Dates: start: 20091008
  3. FOSAMPRENAVIR [Concomitant]
     Route: 064
     Dates: end: 20090904
  4. KALETRA [Concomitant]
     Route: 064
     Dates: start: 20090904, end: 20091003
  5. COMBIVIR [Concomitant]
     Route: 064
     Dates: start: 20090904
  6. NORVIR [Concomitant]
     Route: 064

REACTIONS (1)
  - SMALL FOR DATES BABY [None]
